FAERS Safety Report 4923731-3 (Version None)
Quarter: 2006Q1

REPORT INFORMATION
  Report Type: 
  Country: None (occurrence: None)
  Receive Date: 20060227
  Receipt Date: 20050414
  Transmission Date: 20060701
  Serious: Yes (Other)
  Sender: FDA-Public Use
  Company Number: US-MERCK-0504USA02857

PATIENT
  Age: 53 Year
  Sex: Male
  Weight: 85 kg

DRUGS (7)
  1. VIOXX [Suspect]
     Indication: ARTHRITIS
     Route: 048
     Dates: start: 20040101, end: 20041101
  2. NORVASC [Concomitant]
     Route: 065
  3. PRAVACHOL [Concomitant]
     Route: 065
     Dates: start: 20010301
  4. ASPIRIN [Concomitant]
     Route: 065
     Dates: start: 19950101
  5. LAMISIL [Concomitant]
     Route: 065
  6. CLOBETASOL PROPIONATE [Concomitant]
     Route: 065
  7. CLOBETASOL PROPIONATE [Concomitant]
     Route: 065

REACTIONS (2)
  - ALCOHOLISM [None]
  - MYOCARDIAL INFARCTION [None]
